FAERS Safety Report 5733688-3 (Version None)
Quarter: 2008Q2

REPORT INFORMATION
  Report Type: 
  Country: None (occurrence: None)
  Receive Date: 20080509
  Receipt Date: 20080321
  Transmission Date: 20081010
  Serious: No
  Sender: FDA-Public Use
  Company Number: A0716801A

PATIENT
  Sex: Female

DRUGS (13)
  1. ALTABAX [Suspect]
     Indication: SKIN BACTERIAL INFECTION
     Route: 061
     Dates: start: 20080318, end: 20080319
  2. UNKNOWN MEDICATION [Concomitant]
  3. VALTREX [Concomitant]
  4. PHENYTOIN [Concomitant]
  5. METFORMIN HCL [Concomitant]
  6. VESICARE [Concomitant]
  7. AMITRIPTLINE HCL [Concomitant]
  8. METOCLOPRAMIDE [Concomitant]
  9. CRESTOR [Concomitant]
  10. CELEBREX [Concomitant]
  11. NOVOLOG [Concomitant]
  12. HYDROCODONE BITARTRATE [Concomitant]
  13. ADVAIR HFA [Concomitant]

REACTIONS (3)
  - DRUG ADMINISTRATION ERROR [None]
  - EPISTAXIS [None]
  - THERAPEUTIC RESPONSE UNEXPECTED [None]
